FAERS Safety Report 9401469 (Version 2)
Quarter: 2013Q3

REPORT INFORMATION
  Report Type: Spontaneous
  Country: US (occurrence: US)
  Receive Date: 20130716
  Receipt Date: 20130724
  Transmission Date: 20140515
  Serious: Yes (Hospitalization)
  Sender: FDA-Public Use
  Company Number: US-AMGEN-USASP2013048300

PATIENT
  Age: 74 Year
  Sex: Female

DRUGS (12)
  1. ENBREL [Suspect]
     Indication: RHEUMATOID ARTHRITIS
     Dosage: 50 MG, QWK
     Route: 065
     Dates: start: 20050517
  2. ENBREL [Suspect]
     Indication: PSORIATIC ARTHROPATHY
  3. ENBREL [Suspect]
     Indication: PSORIASIS
  4. AMBIEN [Concomitant]
     Indication: SLEEP DISORDER
     Dosage: 10 MG, QHS
     Route: 048
  5. CELEBREX [Concomitant]
     Indication: ARTHRITIS
     Dosage: 200 MG, QAM
     Route: 048
  6. CYCLOBENZAPRINE [Concomitant]
     Indication: MUSCLE DISORDER
     Dosage: 10 MG, QD
     Route: 048
  7. HUMALOG [Concomitant]
     Indication: DIABETES MELLITUS
     Dosage: UNK
  8. VICODIN [Concomitant]
     Indication: PAIN
     Dosage: 5/500 MG, BID
     Route: 048
  9. LISINOPRIL [Concomitant]
     Indication: BLOOD PRESSURE
     Dosage: 40 MG, QHS
     Route: 048
  10. NIASPAN ER [Concomitant]
     Indication: BLOOD CHOLESTEROL
     Dosage: 500 MG, QD
     Route: 048
  11. PREMARIN [Concomitant]
     Indication: HORMONE THERAPY
     Dosage: 0.625 MG, UNK
     Route: 048
  12. PREVACID [Concomitant]
     Indication: GASTROOESOPHAGEAL REFLUX DISEASE
     Dosage: 15 MG, PM
     Route: 048

REACTIONS (1)
  - Scoliosis surgery [Recovered/Resolved]
